FAERS Safety Report 13743485 (Version 2)
Quarter: 2017Q3

REPORT INFORMATION
  Report Type: Spontaneous
  Country: IT (occurrence: IT)
  Receive Date: 20170711
  Receipt Date: 20170718
  Transmission Date: 20171127
  Serious: Yes (Hospitalization, Other)
  Sender: FDA-Public Use
  Company Number: IT-TEVA-784865ACC

PATIENT
  Age: 62 Year
  Sex: Male

DRUGS (4)
  1. METRONIDAZOLE. [Suspect]
     Active Substance: METRONIDAZOLE
     Indication: CLOSTRIDIUM DIFFICILE INFECTION
     Dosage: 2000 MILLIGRAM DAILY;
     Route: 048
  2. CIPROFLOXACIN HYDROCHLORIDE MONOHYDRATE [Suspect]
     Active Substance: CIPROFLOXACIN HYDROCHLORIDE
     Indication: ANTIBIOTIC PROPHYLAXIS
     Dosage: RECEIVED FOR SEVEN DAYS
     Route: 065
     Dates: start: 201604
  3. METRONIDAZOLE. [Suspect]
     Active Substance: METRONIDAZOLE
     Indication: DIARRHOEA
  4. CEFTAZIDIME. [Suspect]
     Active Substance: CEFTAZIDIME
     Indication: URINARY TRACT INFECTION
     Dosage: RECEIVED FOR SEVEN DAYS
     Route: 065
     Dates: start: 201604

REACTIONS (7)
  - Listeriosis [Unknown]
  - Pseudomembranous colitis [Unknown]
  - Septic shock [Unknown]
  - Coma [Unknown]
  - Infection [Unknown]
  - Meningitis [Unknown]
  - Clostridium difficile infection [Unknown]

NARRATIVE: CASE EVENT DATE: 2016
